FAERS Safety Report 5729101-2 (Version None)
Quarter: 2008Q2

REPORT INFORMATION
  Report Type: 
  Country: None (occurrence: None)
  Receive Date: 20080505
  Receipt Date: 20080505
  Transmission Date: 20081010
  Serious: No
  Sender: FDA-Public Use
  Company Number: None

PATIENT
  Sex: Female
  Weight: 58.9676 kg

DRUGS (2)
  1. WELLBUTRIN SR [Suspect]
     Indication: GENERALISED ANXIETY DISORDER
     Dosage: 100MG DAILY ORAL
     Route: 048
     Dates: start: 20071016, end: 20071019
  2. WELLBUTRIN SR [Suspect]
     Indication: SOCIAL PHOBIA
     Dosage: 100MG DAILY ORAL
     Route: 048
     Dates: start: 20071016, end: 20071019

REACTIONS (2)
  - THERAPEUTIC RESPONSE UNEXPECTED WITH DRUG SUBSTITUTION [None]
  - URTICARIA [None]
